FAERS Safety Report 25541327 (Version 2)
Quarter: 2025Q3

REPORT INFORMATION
  Report Type: Report from Study
  Country: CA (occurrence: CA)
  Receive Date: 20250711
  Receipt Date: 20250811
  Transmission Date: 20251020
  Serious: Yes (Death, Hospitalization, Other)
  Sender: ABBVIE
  Company Number: CA-ABBVIE-6364665

PATIENT
  Age: 78 Year
  Sex: Male
  Weight: 81.3 kg

DRUGS (2)
  1. VENETOCLAX [Suspect]
     Active Substance: VENETOCLAX
     Indication: Acute myeloid leukaemia
     Dosage: TWO TABLETS OF 200MG ONCE DAILY ON DAYS 1 TO 14 OF EACH 28 DAY CYCLE?FORM STRENGTH: 100MG
     Route: 048
     Dates: start: 20240304, end: 20250601
  2. AZACITIDINE [Concomitant]
     Active Substance: AZACITIDINE
     Indication: Product used for unknown indication

REACTIONS (4)
  - Death [Fatal]
  - Febrile neutropenia [Unknown]
  - Pneumonia aspiration [Unknown]
  - Cardiac failure [Unknown]

NARRATIVE: CASE EVENT DATE: 20250101
